FAERS Safety Report 7906210-0 (Version None)
Quarter: 2011Q4

REPORT INFORMATION
  Report Type: 
  Country: None (occurrence: None)
  Receive Date: 20111110
  Receipt Date: 20111031
  Transmission Date: 20120403
  Serious: Yes (Life-Threatening)
  Sender: FDA-Public Use
  Company Number: JP-ASTELLAS-2011US006266

PATIENT
  Sex: Male

DRUGS (16)
  1. MEROPENEM [Concomitant]
     Indication: PNEUMONIA
     Dosage: UNK
     Route: 065
     Dates: start: 20110902, end: 20110915
  2. HICALIQ [Concomitant]
     Indication: PRODUCT USED FOR UNKNOWN INDICATION
     Dosage: UNK
     Route: 065
     Dates: start: 20110911, end: 20110915
  3. NOVOLIN R [Concomitant]
     Indication: PRODUCT USED FOR UNKNOWN INDICATION
     Dosage: UNK
     Route: 065
     Dates: start: 20110912, end: 20110915
  4. METHYLPREDNISOLONE SODIUM SUCCINATE [Concomitant]
     Indication: PRODUCT USED FOR UNKNOWN INDICATION
     Dosage: UNK
     Route: 065
     Dates: start: 20110909, end: 20110915
  5. NORVASC [Concomitant]
     Indication: PRODUCT USED FOR UNKNOWN INDICATION
     Dosage: UNK
     Route: 065
     Dates: start: 20110831
  6. LOSARTAN POTASSIUM AND HYDROCHLOROTHIAZIDE [Concomitant]
     Indication: PRODUCT USED FOR UNKNOWN INDICATION
     Dosage: UNK
     Route: 065
     Dates: start: 20110831, end: 20110925
  7. OTSUKA MV [Concomitant]
     Indication: PRODUCT USED FOR UNKNOWN INDICATION
     Dosage: UNK
     Route: 065
     Dates: start: 20110911, end: 20110915
  8. INTRALIPID 10% [Concomitant]
     Indication: PRODUCT USED FOR UNKNOWN INDICATION
     Dosage: UNK
     Route: 065
     Dates: start: 20110911
  9. GLOBULIN [Concomitant]
     Indication: PRODUCT USED FOR UNKNOWN INDICATION
     Dosage: 5 G, UID/QD
     Dates: start: 20110903
  10. AMBISOME [Suspect]
     Indication: PNEUMONIA
     Dosage: 250 MG, UNKNOWN/D
     Route: 041
     Dates: start: 20110908, end: 20110915
  11. ZYVOX [Concomitant]
     Indication: PNEUMONIA
     Dosage: UNK
     Route: 065
     Dates: start: 20110909, end: 20110915
  12. LEBENIN [Concomitant]
     Indication: PRODUCT USED FOR UNKNOWN INDICATION
     Dosage: UNK
     Route: 065
     Dates: start: 20110913
  13. CEFPIROME [Concomitant]
     Indication: PNEUMONIA
     Dosage: 2 G, UID/QD
     Route: 065
     Dates: start: 20110828, end: 20110902
  14. ELEMENMIC [Concomitant]
     Indication: PRODUCT USED FOR UNKNOWN INDICATION
     Dosage: UNK
     Route: 065
     Dates: start: 20110911, end: 20110915
  15. OMEPRAZOLE [Suspect]
     Indication: ULCER HAEMORRHAGE
     Dosage: 40 MG, UNKNOWN/D
     Route: 042
     Dates: start: 20110828, end: 20110915
  16. ELASPOL [Concomitant]
     Indication: PRODUCT USED FOR UNKNOWN INDICATION
     Dosage: UNK
     Route: 065
     Dates: start: 20110909, end: 20110917

REACTIONS (1)
  - RHABDOMYOLYSIS [None]
